FAERS Safety Report 5221859-4 (Version None)
Quarter: 2007Q1

REPORT INFORMATION
  Report Type: 
  Country: None (occurrence: None)
  Receive Date: 20070129
  Receipt Date: 20070118
  Transmission Date: 20070707
  Serious: Yes (Hospitalization)
  Sender: FDA-Public Use
  Company Number: JP-ROCHE-472539

PATIENT
  Age: 72 Year
  Sex: Male

DRUGS (6)
  1. HORIZON [Suspect]
     Indication: SEDATION
     Dosage: DAILY DOSE: 15 MG DIVIDED INTO 6 DOSES.
     Route: 042
     Dates: start: 20010508, end: 20010515
  2. PENICILLIN G [Concomitant]
     Indication: TETANUS
     Route: 042
     Dates: start: 20010504, end: 20010505
  3. ADSORBED TETANUS TOXOID [Concomitant]
     Indication: TETANUS
  4. ANTITETANUS IMMUNOGLOBULIN INJECTION [Concomitant]
     Indication: TETANUS
     Dosage: DRUG NAME REPORTED AS TETANOBULIN (HUMAN ANTI-TETANUS IMMUNOGLOBULIN).
     Dates: start: 20010504, end: 20010510
  5. ITOROL [Concomitant]
     Indication: ANGINA PECTORIS
     Route: 048
     Dates: start: 20010504, end: 20010605
  6. GASTER [Concomitant]
     Indication: PROPHYLAXIS
     Route: 042
     Dates: start: 20010508, end: 20010605

REACTIONS (2)
  - DEEP VEIN THROMBOSIS [None]
  - PULMONARY EMBOLISM [None]
